FAERS Safety Report 23721913 (Version 1)
Quarter: 2024Q2

REPORT INFORMATION
  Report Type: Spontaneous
  Country: CZ (occurrence: CZ)
  Receive Date: 20240409
  Receipt Date: 20240409
  Transmission Date: 20240715
  Serious: Yes (Hospitalization, Other)
  Sender: FDA-Public Use
  Company Number: CZ-MLMSERVICE-20220915-3798739-1

PATIENT
  Age: 49 Year
  Sex: Male
  Weight: 77 kg

DRUGS (10)
  1. PREDNISONE [Suspect]
     Active Substance: PREDNISONE
     Indication: Immunosuppression
     Dosage: 20 MG, QD
     Route: 048
     Dates: start: 201907
  2. PREDNISONE [Suspect]
     Active Substance: PREDNISONE
     Dosage: 5 MG, QD (AT MONTH 3)
     Route: 048
     Dates: start: 202103, end: 202209
  3. ANTI-THYMOCYTE GLOBULIN (RABBIT) NOS [Suspect]
     Active Substance: LAPINE T-LYMPHOCYTE IMMUNE GLOBULIN
     Indication: Immunosuppressant drug therapy
     Dosage: 2.9 MG/KG
     Dates: start: 201907
  4. ANTI-THYMOCYTE GLOBULIN (RABBIT) NOS [Suspect]
     Active Substance: LAPINE T-LYMPHOCYTE IMMUNE GLOBULIN
     Dosage: 125 MG, QD (POD 0- POD 1)
     Route: 042
     Dates: start: 201907
  5. ISCALIMAB [Suspect]
     Active Substance: ISCALIMAB
     Indication: Immunosuppressant drug therapy
     Dosage: 300 MG OR 600 MG PARTIALLY BLINDED
     Route: 058
     Dates: start: 201907
  6. ISCALIMAB [Suspect]
     Active Substance: ISCALIMAB
     Dosage: 300 MG OR 600 MG PARTIALLY BLINDED
     Route: 058
     Dates: start: 201907
  7. TACROLIMUS [Suspect]
     Active Substance: TACROLIMUS
     Indication: Immunosuppressant drug therapy
     Dosage: TARGET TACROLIMUS LEVELS 5?7 ?G/L
     Route: 048
     Dates: start: 202103
  8. MYCOPHENOLATE MOFETIL [Suspect]
     Active Substance: MYCOPHENOLATE MOFETIL
     Indication: Immunosuppressant drug therapy
     Dosage: 1 G, QD
     Route: 048
     Dates: start: 201907, end: 201909
  9. MYCOPHENOLATE MOFETIL [Suspect]
     Active Substance: MYCOPHENOLATE MOFETIL
     Dosage: 2 G
     Route: 048
     Dates: start: 201907, end: 202102
  10. MYCOPHENOLATE MOFETIL [Suspect]
     Active Substance: MYCOPHENOLATE MOFETIL
     Dosage: 1 G, BID
     Dates: start: 201910, end: 202102

REACTIONS (8)
  - Disseminated tuberculosis [Recovering/Resolving]
  - Tuberculosis [Recovering/Resolving]
  - Diarrhoea [Unknown]
  - Condition aggravated [Not Recovered/Not Resolved]
  - Tracheitis [Unknown]
  - Oropharyngeal pain [Unknown]
  - COVID-19 [Unknown]
  - Cough [Unknown]

NARRATIVE: CASE EVENT DATE: 20201001
